FAERS Safety Report 5798094-4 (Version None)
Quarter: 2008Q3

REPORT INFORMATION
  Report Type: 
  Country: None (occurrence: None)
  Receive Date: 20080702
  Receipt Date: 20080627
  Transmission Date: 20090109
  Serious: Yes (Other)
  Sender: FDA-Public Use
  Company Number: US-ROCHE-542014

PATIENT
  Sex: Female
  Weight: 68 kg

DRUGS (2)
  1. CAPECITABINE [Suspect]
     Indication: BREAST CANCER
     Dosage: PATIENT REPORTED HAD RECEIVED FOUR CYCLES OF THERAPY. FREQUENCY: 10 DAYS ON AND 11 DAYS OFF
     Route: 048
     Dates: start: 20070102
  2. SYNTHROID [Concomitant]
     Indication: HYPOTHYROIDISM

REACTIONS (1)
  - MANIA [None]
